FAERS Safety Report 7272837-5 (Version None)
Quarter: 2011Q1

REPORT INFORMATION
  Report Type: 
  Country: None (occurrence: None)
  Receive Date: 20110203
  Receipt Date: 20101202
  Transmission Date: 20110831
  Serious: No
  Sender: FDA-Public Use
  Company Number: US-BAYER-2010-003493

PATIENT
  Sex: Female
  Weight: 73 kg

DRUGS (3)
  1. ANTIHYPERTENSIVES [Concomitant]
  2. ALEVE [Suspect]
     Indication: ARTHRITIS
     Dosage: 220 MG, BID
     Route: 048
  3. PLAVIX [Concomitant]

REACTIONS (1)
  - ARTHRITIS [None]
